FAERS Safety Report 14235644 (Version 1)
Quarter: 2017Q4

REPORT INFORMATION
  Report Type: Report from Study
  Country: US (occurrence: US)
  Receive Date: 20171129
  Receipt Date: 20171129
  Transmission Date: 20180321
  Serious: Yes (Death)
  Sender: FDA-Public Use
  Company Number: US-ROCHE-2010726

PATIENT
  Age: 52 Year
  Sex: Male
  Weight: 76 kg

DRUGS (4)
  1. ERLOTINIB [Suspect]
     Active Substance: ERLOTINIB
     Indication: NON-SMALL CELL LUNG CANCER
     Route: 048
     Dates: start: 20050614
  2. CETUXIMAB. [Suspect]
     Active Substance: CETUXIMAB
     Dosage: CYCLE 2
     Route: 042
  3. BEVACIZUMAB. [Suspect]
     Active Substance: BEVACIZUMAB
     Indication: NON-SMALL CELL LUNG CANCER
     Route: 042
     Dates: start: 20061102
  4. CETUXIMAB. [Suspect]
     Active Substance: CETUXIMAB
     Indication: NON-SMALL CELL LUNG CANCER
     Dosage: CYCLE 1
     Route: 042
     Dates: start: 20061102

REACTIONS (1)
  - Death [Fatal]

NARRATIVE: CASE EVENT DATE: 20070401
